FAERS Safety Report 16653120 (Version 2)
Quarter: 2019Q3

REPORT INFORMATION
  Report Type: Spontaneous
  Country: CA (occurrence: CA)
  Receive Date: 20190731
  Receipt Date: 20190919
  Transmission Date: 20191004
  Serious: Yes (Life-Threatening, Hospitalization)
  Sender: FDA-Public Use
  Company Number: CA-TEVA-2019-CA-1084895

PATIENT
  Age: 60 Year
  Sex: Male

DRUGS (18)
  1. MIDODRINE [Suspect]
     Active Substance: MIDODRINE
     Indication: PRODUCT USED FOR UNKNOWN INDICATION
     Dosage: 5 MILLIGRAM DAILY;
     Route: 065
  2. VITAMIN D3 [Suspect]
     Active Substance: CHOLECALCIFEROL
     Indication: PRODUCT USED FOR UNKNOWN INDICATION
     Dosage: 1000 IU (INTERNATIONAL UNIT) DAILY;
     Route: 065
  3. PANTOPRAZOLE [Suspect]
     Active Substance: PANTOPRAZOLE
     Indication: PRODUCT USED FOR UNKNOWN INDICATION
     Dosage: 40 MILLIGRAM DAILY;
     Route: 048
  4. ACETYLSALICYLIC ACID [Suspect]
     Active Substance: ASPIRIN
     Indication: PRODUCT USED FOR UNKNOWN INDICATION
     Dosage: 81 MILLIGRAM DAILY;
     Route: 065
  5. CYANOCOBALAMIN. [Suspect]
     Active Substance: CYANOCOBALAMIN
     Indication: PRODUCT USED FOR UNKNOWN INDICATION
     Dosage: 1000 MU DAILY;
     Route: 048
  6. HYALURONATE SODIUM [Suspect]
     Active Substance: HYALURONATE SODIUM
     Indication: PRODUCT USED FOR UNKNOWN INDICATION
     Route: 047
  7. BIOTENE NOS [Suspect]
     Active Substance: CETYLPYRIDINIUM CHLORIDE OR SODIUM FLUORIDE OR SODIUM MONOFLUOROPHOSPHATE OR GLUCOSE OXIDASE\LACTOFERRIN\LACTOPEROXIDASE BOVINE\LYSOZYME
     Indication: PRODUCT USED FOR UNKNOWN INDICATION
     Route: 048
  8. SIMETHICONE (DIMETHICONE) [Suspect]
     Active Substance: DIMETHICONE
     Indication: DIARRHOEA
     Dosage: 360 MILLIGRAM DAILY;
     Route: 065
  9. COLESEVELAM HYDROCHLORIDE. [Suspect]
     Active Substance: COLESEVELAM HYDROCHLORIDE
     Indication: PRODUCT USED FOR UNKNOWN INDICATION
     Dosage: 625 MILLIGRAM DAILY;
     Route: 065
  10. LEVOTHYROXINE. [Suspect]
     Active Substance: LEVOTHYROXINE
     Indication: PRODUCT USED FOR UNKNOWN INDICATION
     Route: 048
  11. DEXAMETHASONE. [Suspect]
     Active Substance: DEXAMETHASONE
     Indication: PRODUCT USED FOR UNKNOWN INDICATION
     Route: 065
  12. HYDROCORTISONE ACETATE CREAM USP [Suspect]
     Active Substance: HYDROCORTISONE ACETATE
     Indication: SCROTAL SWELLING
     Route: 065
  13. ASCORBIC ACID (VITAMIN C) [Suspect]
     Active Substance: ASCORBIC ACID
     Indication: PRODUCT USED FOR UNKNOWN INDICATION
     Dosage: 600 MILLIGRAM DAILY;
     Route: 065
  14. EPREX [Suspect]
     Active Substance: ERYTHROPOIETIN
     Indication: PRODUCT USED FOR UNKNOWN INDICATION
     Route: 065
  15. FLORINEF ACETATE [Suspect]
     Active Substance: FLUDROCORTISONE ACETATE
     Indication: PRODUCT USED FOR UNKNOWN INDICATION
     Dosage: .1 MILLIGRAM DAILY;
     Route: 065
  16. CALCIUM CARBONATE. [Suspect]
     Active Substance: CALCIUM CARBONATE
     Indication: GASTROINTESTINAL DISORDER
     Route: 065
  17. PSYLLIUM HUSK USP [Suspect]
     Active Substance: PSYLLIUM HUSK
     Indication: PRODUCT USED FOR UNKNOWN INDICATION
     Route: 065
  18. LENALIDOMIDE [Suspect]
     Active Substance: LENALIDOMIDE
     Indication: PLASMA CELL MYELOMA
     Route: 048

REACTIONS (1)
  - Cerebrovascular accident [Not Recovered/Not Resolved]
